FAERS Safety Report 6345153-3 (Version None)
Quarter: 2009Q3

REPORT INFORMATION
  Report Type: 
  Country: None (occurrence: None)
  Receive Date: 20090909
  Receipt Date: 20090831
  Transmission Date: 20100115
  Serious: Yes (Hospitalization)
  Sender: FDA-Public Use
  Company Number: CA-JNJFOC-20090900383

PATIENT
  Sex: Male

DRUGS (1)
  1. REMICADE [Suspect]
     Indication: ANKYLOSING SPONDYLITIS
     Dosage: BEEN RECEIVING INFLIXIMAB FOR 4-5 YEARS
     Route: 042

REACTIONS (5)
  - APHASIA [None]
  - CHILLS [None]
  - HYPERTENSION [None]
  - INFUSION RELATED REACTION [None]
  - PYREXIA [None]
